FAERS Safety Report 17965545 (Version 1)
Quarter: 2020Q2

REPORT INFORMATION
  Report Type: Report from Study
  Country: DE (occurrence: DE)
  Receive Date: 20200630
  Receipt Date: 20200630
  Transmission Date: 20200714
  Serious: Yes (Hospitalization)
  Sender: FDA-Public Use
  Company Number: DE-INCYTE CORPORATION-2015IN006057

PATIENT

DRUGS (13)
  1. INCB018424 [Suspect]
     Active Substance: RUXOLITINIB
     Dosage: 40 MG/DAY/TWICE
     Route: 048
     Dates: start: 20150420, end: 20150503
  2. EPOETIN [Concomitant]
     Active Substance: ERYTHROPOIETIN
     Indication: PRODUCT USED FOR UNKNOWN INDICATION
     Dosage: 40000 IU, QMO
     Route: 065
     Dates: start: 20180214
  3. TILIDINE [Concomitant]
     Active Substance: TILIDINE
     Indication: PAIN
     Dosage: 150 MG, QD
     Route: 065
     Dates: start: 20130516, end: 20151204
  4. TORASEMIDE [Concomitant]
     Active Substance: TORSEMIDE
     Indication: OEDEMA PERIPHERAL
     Dosage: 100 MG, QD
     Route: 065
     Dates: start: 20131118, end: 20171122
  5. BICALUTAMIDE. [Concomitant]
     Active Substance: BICALUTAMIDE
     Indication: PROSTATIC SPECIFIC ANTIGEN INCREASED
     Dosage: 5 MG, QD
     Route: 065
     Dates: start: 20150324
  6. INCB018424 [Suspect]
     Active Substance: RUXOLITINIB
     Indication: MYELOFIBROSIS
     Dosage: 30 MG/DAY/TWICE
     Route: 048
     Dates: start: 20150324
  7. INCB018424 [Suspect]
     Active Substance: RUXOLITINIB
     Dosage: 30 MG/DAY/TWICE
     Route: 048
     Dates: start: 20170927
  8. VOLON [Concomitant]
     Indication: PIGMENTATION DISORDER
     Dosage: 10 MG, UNK
     Route: 065
     Dates: start: 20040824, end: 20171122
  9. RAMIPRIL. [Concomitant]
     Active Substance: RAMIPRIL
     Indication: PRODUCT USED FOR UNKNOWN INDICATION
     Dosage: 2.5 MG, UNK
     Route: 065
     Dates: start: 20171122
  10. VESIKUR [Concomitant]
     Active Substance: SOLIFENACIN SUCCINATE
     Indication: INCONTINENCE
     Dosage: 5 MG, QD
     Route: 065
     Dates: start: 20140220, end: 20171122
  11. ELIQUIS [Concomitant]
     Active Substance: APIXABAN
     Indication: PRODUCT USED FOR UNKNOWN INDICATION
     Dosage: 5 MG, UNK
     Route: 065
     Dates: start: 20171122
  12. INCB018424 [Suspect]
     Active Substance: RUXOLITINIB
     Dosage: 25 MG, BID (2 DF OF 05MG AND 02 DF OF 20 MG PER DAY)
     Route: 048
     Dates: start: 20150504, end: 20170705
  13. INCB018424 [Suspect]
     Active Substance: RUXOLITINIB
     Dosage: 40 MG/DAY/TWICE
     Route: 048
     Dates: start: 20170706, end: 20170926

REACTIONS (4)
  - Dyspnoea [Recovered/Resolved]
  - Anaemia [Recovering/Resolving]
  - Dyspnoea [Recovered/Resolved]
  - Iron overload [Recovering/Resolving]

NARRATIVE: CASE EVENT DATE: 20151013
